FAERS Safety Report 13891812 (Version 1)
Quarter: 2017Q3

REPORT INFORMATION
  Report Type: Spontaneous
  Country: US (occurrence: US)
  Receive Date: 20170822
  Receipt Date: 20170822
  Transmission Date: 20171127
  Serious: Yes (Death, Hospitalization, Other)
  Sender: FDA-Public Use
  Company Number: US-009507513-LUS-102658-US

PATIENT
  Age: 84 Year
  Sex: Female

DRUGS (1)
  1. TICE BCG [Suspect]
     Active Substance: BACILLUS CALMETTE-GUERIN SUBSTRAIN TICE LIVE ANTIGEN
     Indication: BLADDER CANCER
     Dosage: DOSE TEXT: 1 CC OF 1 AMP IN 10 CC INTRALESIONAL (ONE DOSE), CONTINUING: NO
     Dates: start: 19920413, end: 19920417

REACTIONS (3)
  - Sepsis [Fatal]
  - Disseminated intravascular coagulation [Unknown]
  - Off label use [Unknown]

NARRATIVE: CASE EVENT DATE: 19920414
